FAERS Safety Report 15798099 (Version 4)
Quarter: 2019Q2

REPORT INFORMATION
  Report Type: Spontaneous
  Country: CA (occurrence: CA)
  Receive Date: 20190108
  Receipt Date: 20190528
  Transmission Date: 20190711
  Serious: Yes (Death, Other)
  Sender: FDA-Public Use
  Company Number: CA-PFIZER INC-2019005710

PATIENT
  Age: 27 Year
  Sex: Female

DRUGS (19)
  1. MIDAZOLAM [Suspect]
     Active Substance: MIDAZOLAM HYDROCHLORIDE
     Indication: STATUS EPILEPTICUS
     Dosage: UNK
     Route: 030
  2. KEPPRA [Suspect]
     Active Substance: LEVETIRACETAM
     Indication: STATUS EPILEPTICUS
     Dosage: UNK
     Route: 065
  3. KEPPRA [Suspect]
     Active Substance: LEVETIRACETAM
     Dosage: UNK
     Route: 065
  4. PENTOBARBITAL. [Suspect]
     Active Substance: PENTOBARBITAL
     Indication: STATUS EPILEPTICUS
     Dosage: UNK
     Route: 065
  5. VALPROIC ACID. [Suspect]
     Active Substance: VALPROIC ACID
     Indication: STATUS EPILEPTICUS
     Dosage: UNK
     Route: 065
  6. VIMPAT [Suspect]
     Active Substance: LACOSAMIDE
     Indication: STATUS EPILEPTICUS
     Dosage: UNK
     Route: 065
  7. FORANE [Suspect]
     Active Substance: ISOFLURANE
     Indication: STATUS EPILEPTICUS
     Dosage: UNK
     Route: 065
  8. FORANE [Suspect]
     Active Substance: ISOFLURANE
     Indication: OFF LABEL USE
  9. IMMUNE GLOBULIN NOS [Suspect]
     Active Substance: IMMUNE GLOBULIN NOS
     Dosage: UNK
     Route: 030
  10. PROPOFOL. [Suspect]
     Active Substance: PROPOFOL
     Indication: STATUS EPILEPTICUS
     Dosage: UNK [1 EVERY 1 HOUR]
     Route: 065
  11. TOPIRAMATE. [Suspect]
     Active Substance: TOPIRAMATE
     Indication: STATUS EPILEPTICUS
     Dosage: UNK
     Route: 065
  12. CLOBAZAM. [Suspect]
     Active Substance: CLOBAZAM
     Indication: STATUS EPILEPTICUS
     Dosage: UNK
     Route: 065
  13. IMMUNE GLOBULIN IV [Suspect]
     Active Substance: HUMAN IMMUNOGLOBULIN G
     Dosage: UNK
     Route: 042
  14. VIMPAT [Suspect]
     Active Substance: LACOSAMIDE
     Dosage: UNK
     Route: 065
  15. DEXAMETHASONE. [Suspect]
     Active Substance: DEXAMETHASONE
     Indication: STATUS EPILEPTICUS
     Dosage: UNK
     Route: 065
  16. OXCARBAZEPINE. [Suspect]
     Active Substance: OXCARBAZEPINE
     Indication: STATUS EPILEPTICUS
     Dosage: UNK
     Route: 065
  17. MAGNESIUM [Suspect]
     Active Substance: MAGNESIUM
     Dosage: UNK
     Route: 065
  18. MAGNESIUM SULFATE. [Suspect]
     Active Substance: MAGNESIUM SULFATE
     Indication: STATUS EPILEPTICUS
     Dosage: UNK
     Route: 065
  19. KETAMINE HYDROCHLORIDE. [Suspect]
     Active Substance: KETAMINE HYDROCHLORIDE
     Indication: STATUS EPILEPTICUS
     Dosage: UNK
     Route: 030

REACTIONS (13)
  - Propofol infusion syndrome [Fatal]
  - Status epilepticus [Fatal]
  - Shock [Fatal]
  - Blood lactic acid increased [Fatal]
  - Off label use [Unknown]
  - Arrhythmia [Fatal]
  - Gene mutation [Fatal]
  - Metabolic acidosis [Fatal]
  - Electrocardiogram QT prolonged [Fatal]
  - Drug ineffective for unapproved indication [Unknown]
  - Blood creatine phosphokinase increased [Fatal]
  - Blood gases abnormal [Fatal]
  - Mitochondrial DNA mutation [Fatal]
